FAERS Safety Report 26138196 (Version 1)
Quarter: 2025Q4

REPORT INFORMATION
  Report Type: Report from Study
  Country: US (occurrence: US)
  Receive Date: 20251210
  Receipt Date: 20251210
  Transmission Date: 20260118
  Serious: Yes (Hospitalization, Other)
  Sender: ABBVIE
  Company Number: US-ABBVIE-6576968

PATIENT
  Sex: Male

DRUGS (3)
  1. SKYRIZI [Suspect]
     Active Substance: RISANKIZUMAB-RZAA
     Indication: Psoriasis
     Dosage: DRUG STOP DATE: 2025?DOSE 2
     Route: 058
     Dates: start: 202507
  2. SKYRIZI [Suspect]
     Active Substance: RISANKIZUMAB-RZAA
     Dosage: DRUG STOP DATE:2025?DOSE 1
     Route: 058
     Dates: start: 202506
  3. SKYRIZI [Suspect]
     Active Substance: RISANKIZUMAB-RZAA
     Dosage: DOSE 3
     Route: 058
     Dates: start: 202510

REACTIONS (14)
  - Localised infection [Not Recovered/Not Resolved]
  - Influenza like illness [Unknown]
  - Sputum discoloured [Unknown]
  - Pulmonary congestion [Unknown]
  - Abdominal pain upper [Unknown]
  - Hepatic failure [Unknown]
  - Chills [Unknown]
  - Psoriasis [Not Recovered/Not Resolved]
  - Haemorrhage [Unknown]
  - Blister [Unknown]
  - Fatigue [Unknown]
  - Productive cough [Unknown]
  - Therapeutic response unexpected [Unknown]
  - Pre-existing condition improved [Unknown]

NARRATIVE: CASE EVENT DATE: 20250101
